FAERS Safety Report 10157068 (Version 1)
Quarter: 2014Q2

REPORT INFORMATION
  Report Type: Spontaneous
  Country: US (occurrence: US)
  Receive Date: 20140507
  Receipt Date: 20140507
  Transmission Date: 20141212
  Serious: No
  Sender: FDA-Public Use
  Company Number: US-PFIZER INC-2014122077

PATIENT
  Age: 40 Year
  Sex: Male

DRUGS (2)
  1. GENOTROPIN MQ [Suspect]
     Indication: HYPOPITUITARISM
     Dosage: ALTERNATING 0.2 MG AND 0.4 MG, DAILY
     Route: 058
     Dates: end: 201401
  2. TESTIM [Concomitant]
     Dosage: UNK

REACTIONS (1)
  - Fatigue [Unknown]
